FAERS Safety Report 6703710-6 (Version None)
Quarter: 2010Q2

REPORT INFORMATION
  Report Type: 
  Country: None (occurrence: None)
  Receive Date: 20100423
  Receipt Date: 20090811
  Transmission Date: 20101027
  Serious: Yes (Other)
  Sender: FDA-Public Use
  Company Number: SPV1-2009-01650

PATIENT
  Age: 15 Year
  Sex: Female

DRUGS (1)
  1. VYVANSE [Suspect]
     Indication: ATTENTION DEFICIT/HYPERACTIVITY DISORDER
     Dosage: 110 MG, 1X/DAY;QD, ORAL
     Route: 048
     Dates: start: 20090301, end: 20090801

REACTIONS (5)
  - CARDIAC IMAGING PROCEDURE ABNORMAL [None]
  - ELECTROCARDIOGRAM QT PROLONGED [None]
  - OFF LABEL USE [None]
  - OVERDOSE [None]
  - SYNCOPE [None]
